FAERS Safety Report 5743262-0 (Version None)
Quarter: 2008Q2

REPORT INFORMATION
  Report Type: 
  Country: None (occurrence: None)
  Receive Date: 20080519
  Receipt Date: 20080507
  Transmission Date: 20081010
  Serious: Yes (Hospitalization)
  Sender: FDA-Public Use
  Company Number: FR-PFIZER INC-2006022080

PATIENT
  Sex: Male

DRUGS (7)
  1. SU-011,248 [Suspect]
     Indication: RENAL CELL CARCINOMA
     Route: 048
  2. DIAMICRON [Concomitant]
     Route: 048
  3. ALLOPURINOL [Concomitant]
     Route: 048
  4. DICYNONE [Concomitant]
     Route: 048
  5. SECTRAL [Concomitant]
     Route: 048
  6. MOPRAL [Concomitant]
     Route: 048
  7. DOLIPRANE [Concomitant]
     Route: 048

REACTIONS (1)
  - PROTEINURIA [None]
